FAERS Safety Report 5049932-4 (Version None)
Quarter: 2006Q3

REPORT INFORMATION
  Report Type: 
  Country: None (occurrence: None)
  Receive Date: 20060707
  Receipt Date: 20060703
  Transmission Date: 20061208
  Serious: Yes (Death)
  Sender: FDA-Public Use
  Company Number: 200611331BWH

PATIENT
  Sex: Male
  Weight: 158.759 kg

DRUGS (9)
  1. NEXAVAR [Suspect]
     Indication: RENAL CELL CARCINOMA STAGE UNSPECIFIED
     Dosage: 400 MG, BID, ORAL
     Route: 048
     Dates: start: 20060201
  2. METHADONE HCL [Concomitant]
  3. COLACE [Concomitant]
  4. COUMADIN [Concomitant]
  5. IRON [Concomitant]
  6. LASIX [Concomitant]
  7. PREVACID [Concomitant]
  8. TENORMIN [Concomitant]
  9. MULTI-VITAMIN [Concomitant]

REACTIONS (5)
  - DIARRHOEA [None]
  - DISEASE PROGRESSION [None]
  - HOT FLUSH [None]
  - HYPERHIDROSIS [None]
  - NAUSEA [None]
